FAERS Safety Report 8340324-9 (Version None)
Quarter: 2012Q2

REPORT INFORMATION
  Report Type: 
  Country: None (occurrence: None)
  Receive Date: 20120507
  Receipt Date: 20120507
  Transmission Date: 20120825
  Serious: Yes (Other)
  Sender: FDA-Public Use
  Company Number: None

PATIENT
  Age: 52 Year
  Sex: Female
  Weight: 141.52 kg

DRUGS (1)
  1. CITALOPRAM HYDROBROMIDE [Suspect]
     Dosage: |STRENGTH: 20MG||FREQ: EVERY DAY|
     Dates: start: 20120215, end: 20120405

REACTIONS (23)
  - DYSPNOEA [None]
  - WEIGHT INCREASED [None]
  - ABNORMAL SENSATION IN EYE [None]
  - MYOCARDIAL INFARCTION [None]
  - HEADACHE [None]
  - VISION BLURRED [None]
  - ECONOMIC PROBLEM [None]
  - DRUG HYPERSENSITIVITY [None]
  - TREMOR [None]
  - HEART RATE IRREGULAR [None]
  - PALPITATIONS [None]
  - FLUSHING [None]
  - PYREXIA [None]
  - FEELING ABNORMAL [None]
  - PALLOR [None]
  - HYPERHIDROSIS [None]
  - VITREOUS FLOATERS [None]
  - MUSCULOSKELETAL STIFFNESS [None]
  - CHEST PAIN [None]
  - INSOMNIA [None]
  - BLOOD PRESSURE INCREASED [None]
  - HYPOAESTHESIA [None]
  - DIZZINESS [None]
